FAERS Safety Report 8900789 (Version 4)
Quarter: 2013Q2

REPORT INFORMATION
  Report Type: Report from Study
  Country: AR (occurrence: AR)
  Receive Date: 20121109
  Receipt Date: 20130423
  Transmission Date: 20140414
  Serious: Yes (Death, Hospitalization, Other)
  Sender: FDA-Public Use
  Company Number: AR-ABBOTT-12P-007-1002945-00

PATIENT
  Age: 71 Year
  Sex: Female

DRUGS (1)
  1. HUMIRA [Suspect]
     Indication: RHEUMATOID ARTHRITIS
     Route: 058
     Dates: start: 20111101, end: 20120928

REACTIONS (15)
  - Diarrhoea [Fatal]
  - Infection [Fatal]
  - Gastritis [Recovering/Resolving]
  - Meningitis [Recovering/Resolving]
  - Tuberculosis [Recovering/Resolving]
  - Musculoskeletal stiffness [Recovering/Resolving]
  - Pyrexia [Recovering/Resolving]
  - Depression [Recovering/Resolving]
  - Vomiting [Recovering/Resolving]
  - Liver disorder [Unknown]
  - Diarrhoea [Recovering/Resolving]
  - Gastric neoplasm [Unknown]
  - Brain abscess [Unknown]
  - Brain neoplasm [Unknown]
  - Mobility decreased [Not Recovered/Not Resolved]
